FAERS Safety Report 6772498-5 (Version None)
Quarter: 2010Q2

REPORT INFORMATION
  Report Type: 
  Country: None (occurrence: None)
  Receive Date: 20100616
  Receipt Date: 20100427
  Transmission Date: 20101027
  Serious: No
  Sender: FDA-Public Use
  Company Number: US-ASTRAZENECA-2010SE18837

PATIENT
  Age: 803 Month
  Sex: Female
  Weight: 54.4 kg

DRUGS (7)
  1. PULMICORT FLEXHALER [Suspect]
     Dosage: 90 MCG, 2 PUFFS BID
     Route: 055
     Dates: start: 20091201
  2. NEXIUM [Concomitant]
  3. SINGULAIR [Concomitant]
  4. THEDUR [Concomitant]
  5. DISTOLIC TANZA [Concomitant]
  6. AMOXICILLIN AND CLAVULANATE POTASSIUM [Concomitant]
  7. MSA HFA [Concomitant]

REACTIONS (3)
  - CARDIAC DISORDER [None]
  - DRUG INEFFECTIVE [None]
  - SUFFOCATION FEELING [None]
